FAERS Safety Report 13064243 (Version 1)
Quarter: 2016Q4

REPORT INFORMATION
  Report Type: Spontaneous
  Country: US (occurrence: US)
  Receive Date: 20161224
  Receipt Date: 20161224
  Transmission Date: 20170207
  Serious: Yes (Disabling, Other)
  Sender: FDA-Public Use
  Company Number: None

PATIENT
  Age: 75 Year
  Sex: Female
  Weight: 72 kg

DRUGS (12)
  1. TOPROL XL [Concomitant]
     Active Substance: METOPROLOL SUCCINATE
  2. AMLODIPINE BESYLATE. [Concomitant]
     Active Substance: AMLODIPINE BESYLATE
  3. VITAMIN D3 [Concomitant]
     Active Substance: CHOLECALCIFEROL
  4. MILK OF MAGNESIA [Concomitant]
     Active Substance: MAGNESIUM HYDROXIDE
  5. CHLORTHALID [Concomitant]
  6. POTASSIUM CHLORIDE. [Concomitant]
     Active Substance: POTASSIUM CHLORIDE
  7. RIFAMPIN. [Suspect]
     Active Substance: RIFAMPIN
     Indication: URINARY TRACT INFECTION
     Dosage: ?          QUANTITY:1 TABLET(S);?
     Route: 048
     Dates: start: 20160929, end: 20161003
  8. FAMOTIDINE. [Concomitant]
     Active Substance: FAMOTIDINE
  9. BABY ASPIRIN [Concomitant]
     Active Substance: ASPIRIN
  10. ONE-A-DAY NOS [Concomitant]
     Active Substance: MINERALS\VITAMINS
  11. SENNA [Concomitant]
     Active Substance: SENNA LEAF\SENNOSIDES\SENNOSIDES A AND B
  12. CRESTOR [Suspect]
     Active Substance: ROSUVASTATIN CALCIUM

REACTIONS (7)
  - Fatigue [None]
  - Muscular weakness [None]
  - Memory impairment [None]
  - Dysstasia [None]
  - Musculoskeletal stiffness [None]
  - Pain in extremity [None]
  - Drug interaction [None]

NARRATIVE: CASE EVENT DATE: 20161215
